FAERS Safety Report 16256678 (Version 2)
Quarter: 2019Q2

REPORT INFORMATION
  Report Type: Spontaneous
  Country: KR (occurrence: KR)
  Receive Date: 20190430
  Receipt Date: 20190610
  Transmission Date: 20190711
  Serious: Yes (Death, Hospitalization, Other)
  Sender: FDA-Public Use
  Company Number: KR-009507513-1904KOR012861

PATIENT
  Sex: Female

DRUGS (12)
  1. MEGACE F [Concomitant]
     Dosage: QUANTITY 1, DAYS 1
     Dates: start: 20190409, end: 20190409
  2. DEXTROSE (+) SODIUM CHLORIDE [Concomitant]
     Dosage: 1000 ML (QUANTITY 1, DAYS 1)
     Dates: start: 20190409, end: 20190409
  3. SODIUM CHLORIDE. [Concomitant]
     Active Substance: SODIUM CHLORIDE
     Dosage: QUANTITY 1, DAYS 5
     Dates: start: 20190409, end: 20190409
  4. KEYTRUDA [Suspect]
     Active Substance: PEMBROLIZUMAB
     Indication: GALLBLADDER CANCER
     Dosage: QUANTITY 2, DAYS 1
     Dates: start: 20190409, end: 20190409
  5. ZYLORIC [Concomitant]
     Active Substance: ALLOPURINOL
     Dosage: QUANTITY 1, DAYS 1
     Dates: start: 20190409, end: 20190409
  6. DUPHALAC [Concomitant]
     Active Substance: LACTULOSE
     Dosage: QUANTITY 2, DAYS 1
     Dates: start: 20190409, end: 20190409
  7. AZEPTIN [Concomitant]
     Active Substance: AZELASTINE HYDROCHLORIDE
     Dosage: QUANTITY 2, DAYS 1
     Dates: start: 20190409, end: 20190409
  8. INVANZ [Concomitant]
     Active Substance: ERTAPENEM SODIUM
     Dosage: QUANTITY 1, DAYS 1
     Dates: start: 20190409, end: 20190409
  9. DENOGAN [Concomitant]
     Active Substance: PROPACETAMOL HYDROCHLORIDE
     Dosage: QUANTITY 1, DAYS 2
     Dates: start: 20190409, end: 20190409
  10. PANTOLINE INJECTION [Concomitant]
     Dosage: QUANTITY 1, DAYS 1
     Dates: start: 20190409, end: 20190409
  11. URSA TABLETS [Concomitant]
     Dosage: QUANTITY 3, DAYS 1
     Dates: start: 20190409, end: 20190409
  12. BC MORPHINE SULFATE [Concomitant]
     Dosage: QUANTITY 1, DAYS 2
     Dates: start: 20190409, end: 20190409

REACTIONS (6)
  - Malignant neoplasm progression [Fatal]
  - Cholangitis [Fatal]
  - Multiple organ dysfunction syndrome [Fatal]
  - Hepatic failure [Fatal]
  - Adverse event [Unknown]
  - Product use in unapproved indication [Unknown]

NARRATIVE: CASE EVENT DATE: 2019
